FAERS Safety Report 8464774-5 (Version None)
Quarter: 2012Q2

REPORT INFORMATION
  Report Type: 
  Country: None (occurrence: None)
  Receive Date: 20120618
  Receipt Date: 20120607
  Transmission Date: 20120825
  Serious: Yes (Death, Hospitalization)
  Sender: FDA-Public Use
  Company Number: IMP_05913_2012

PATIENT
  Age: 15 Year
  Sex: Female

DRUGS (1)
  1. MINOCYCLINE HCL [Suspect]
     Indication: ACNE
     Dosage: (DF (FREQUENCY UNKNOWN))

REACTIONS (17)
  - STATUS EPILEPTICUS [None]
  - ENCEPHALITIS [None]
  - STAPHYLOCOCCAL SEPSIS [None]
  - CYTOMEGALOVIRUS INFECTION [None]
  - RENAL FAILURE [None]
  - DRUG RASH WITH EOSINOPHILIA AND SYSTEMIC SYMPTOMS [None]
  - PSEUDOMONAL SEPSIS [None]
  - DISSEMINATED INTRAVASCULAR COAGULATION [None]
  - THROMBOCYTOPENIA [None]
  - HYPERTENSION [None]
  - PNEUMONITIS [None]
  - ACUTE RESPIRATORY DISTRESS SYNDROME [None]
  - DERMATITIS EXFOLIATIVE [None]
  - MULTI-ORGAN FAILURE [None]
  - PHARYNGITIS [None]
  - HEPATOSPLENOMEGALY [None]
  - SHOCK [None]
